FAERS Safety Report 7858943-2 (Version None)
Quarter: 2011Q4

REPORT INFORMATION
  Report Type: 
  Country: None (occurrence: None)
  Receive Date: 20111027
  Receipt Date: 20111011
  Transmission Date: 20120403
  Serious: Yes (Hospitalization)
  Sender: FDA-Public Use
  Company Number: US-BAYER-2011-021210

PATIENT
  Age: 26 Year
  Sex: Female
  Weight: 58 kg

DRUGS (5)
  1. PERCOCET [Concomitant]
     Indication: ANALGESIC THERAPY
     Dosage: UNK
     Dates: start: 20090101
  2. XANAX [Concomitant]
     Indication: DEPRESSION
     Dosage: UNK
     Dates: start: 20090101
  3. DROSPIRENONE AND ETHINYL ESTRADIOL [Suspect]
     Indication: ORAL CONTRACEPTION
     Dosage: UNK
     Dates: start: 20090301, end: 20090601
  4. CELEXA [Concomitant]
     Indication: POSTPARTUM DEPRESSION
     Dosage: UNK
     Dates: start: 20090101
  5. IBUPROFEN (ADVIL) [Concomitant]
     Indication: ANALGESIC THERAPY
     Dosage: UNK UNK, PRN
     Dates: start: 20090501

REACTIONS (4)
  - INJURY [None]
  - CHOLECYSTITIS CHRONIC [None]
  - PAIN [None]
  - CHOLELITHIASIS [None]
